FAERS Safety Report 11277371 (Version 2)
Quarter: 2015Q3

REPORT INFORMATION
  Report Type: Spontaneous
  Country: US (occurrence: US)
  Receive Date: 20150716
  Receipt Date: 20150806
  Transmission Date: 20151125
  Serious: No
  Sender: FDA-Public Use
  Company Number: US-PFIZER INC-2015235210

PATIENT
  Age: 51 Year
  Sex: Female
  Weight: 48 kg

DRUGS (1)
  1. CHANTIX [Suspect]
     Active Substance: VARENICLINE TARTRATE
     Indication: SMOKING CESSATION THERAPY
     Dosage: UNK
     Dates: start: 2014

REACTIONS (4)
  - Insomnia [Unknown]
  - Nausea [Unknown]
  - Nervousness [Unknown]
  - Drug intolerance [Unknown]
